FAERS Safety Report 10091034 (Version 1)
Quarter: 2014Q2

REPORT INFORMATION
  Report Type: Spontaneous
  Country: US (occurrence: US)
  Receive Date: 20140421
  Receipt Date: 20140421
  Transmission Date: 20141212
  Serious: No
  Sender: FDA-Public Use
  Company Number: US-GILEAD-2014-0100164

PATIENT
  Age: 45 Year
  Sex: Female

DRUGS (12)
  1. LETAIRIS [Suspect]
     Indication: PULMONARY HYPERTENSION
     Dosage: 10 MG, QD
     Route: 065
     Dates: start: 20130709
  2. ADVAIR [Concomitant]
  3. CELLCEPT                           /01275102/ [Concomitant]
  4. DESONATE [Concomitant]
  5. AMLODIPINE [Concomitant]
  6. CELEBREX [Concomitant]
  7. DEXILANT [Concomitant]
  8. COLACE [Concomitant]
  9. IBANDRONATE [Concomitant]
  10. VISINE                             /00256502/ [Concomitant]
  11. REFRESH                            /00007002/ [Concomitant]
  12. AFRIN                              /00070002/ [Concomitant]

REACTIONS (3)
  - Dry eye [Not Recovered/Not Resolved]
  - Ocular hyperaemia [Not Recovered/Not Resolved]
  - Sinus headache [Not Recovered/Not Resolved]
